FAERS Safety Report 12474087 (Version 6)
Quarter: 2016Q3

REPORT INFORMATION
  Report Type: Report from Study
  Country: US (occurrence: US)
  Receive Date: 20160616
  Receipt Date: 20160921
  Transmission Date: 20161109
  Serious: Yes (Other)
  Sender: FDA-Public Use
  Company Number: US-GILEAD-2016-0214282

PATIENT
  Age: 71 Year
  Sex: Male

DRUGS (1)
  1. IDELALISIB [Suspect]
     Active Substance: IDELALISIB
     Indication: B-CELL LYMPHOMA
     Dosage: 150 MG, BID
     Route: 048
     Dates: start: 20160509

REACTIONS (15)
  - Fatigue [Recovering/Resolving]
  - Rash pruritic [Unknown]
  - Haematemesis [Recovered/Resolved]
  - Feeling abnormal [Recovered/Resolved]
  - Blood count abnormal [Unknown]
  - Sputum discoloured [Unknown]
  - Ear disorder [Unknown]
  - Dizziness [Unknown]
  - Unevaluable event [Unknown]
  - Weight decreased [Not Recovered/Not Resolved]
  - Decreased appetite [Recovered/Resolved]
  - Cough [Unknown]
  - Hypersensitivity [Unknown]
  - Renal pain [Recovered/Resolved]
  - Nausea [Recovered/Resolved]

NARRATIVE: CASE EVENT DATE: 2016
